FAERS Safety Report 4431484-0 (Version None)
Quarter: 2004Q3

REPORT INFORMATION
  Report Type: 
  Country: None (occurrence: None)
  Receive Date: 20040818
  Receipt Date: 20040726
  Transmission Date: 20050211
  Serious: Yes (Hospitalization)
  Sender: FDA-Public Use
  Company Number: 20041951

PATIENT
  Age: 32 Year
  Sex: Female

DRUGS (1)
  1. LIORESAL [Suspect]
     Indication: MUSCLE SPASTICITY
     Dosage: MCG, DAILY, INTRACHECAL

REACTIONS (6)
  - DRUG INEFFECTIVE [None]
  - DRUG TOLERANCE DECREASED [None]
  - FLUID RETENTION [None]
  - MUSCLE SPASMS [None]
  - PYREXIA [None]
  - SEROMA [None]
